FAERS Safety Report 6401946-5 (Version None)
Quarter: 2009Q4

REPORT INFORMATION
  Report Type: 
  Country: None (occurrence: None)
  Receive Date: 20091015
  Receipt Date: 20091013
  Transmission Date: 20100525
  Serious: Yes (Death, Life-Threatening, Hospitalization, Disabling)
  Sender: FDA-Public Use
  Company Number: A0811612A

PATIENT
  Age: 61 Year
  Sex: Male

DRUGS (3)
  1. HYCAMTIN [Suspect]
     Indication: LYMPHOMA
     Route: 042
     Dates: start: 20090416, end: 20090612
  2. MORPHINE [Concomitant]
  3. DILANTIN [Concomitant]

REACTIONS (1)
  - MULTI-ORGAN FAILURE [None]
